FAERS Safety Report 8808465 (Version 3)
Quarter: 2012Q4

REPORT INFORMATION
  Report Type: 
  Country: DE (occurrence: DE)
  Receive Date: 20120926
  Receipt Date: 20121128
  Transmission Date: 20130627
  Serious: Yes (Hospitalization)
  Sender: FDA-Public Use
  Company Number: DE-ELI_LILLY_AND_COMPANY-DE201209005988

PATIENT
  Age: 83 Year
  Sex: Female
  Weight: 90 kg

DRUGS (3)
  1. EFIENT [Suspect]
     Indication: ACUTE CORONARY SYNDROME
     Dosage: 60 mg loading
     Dates: start: 20100823, end: 20101214
  2. ASPIRIN [Concomitant]
  3. MARCOUMAR [Concomitant]
     Dosage: UNK
     Dates: start: 20101214

REACTIONS (3)
  - Hypochromic anaemia [Recovered/Resolved]
  - Adenocarcinoma of colon [Unknown]
  - Haemorrhage [Recovered/Resolved]
